FAERS Safety Report 9468273 (Version 2)
Quarter: 2013Q3

REPORT INFORMATION
  Report Type: Spontaneous
  Country: GB (occurrence: GB)
  Receive Date: 20130821
  Receipt Date: 20130906
  Transmission Date: 20140515
  Serious: Yes (Hospitalization)
  Sender: FDA-Public Use
  Company Number: GB-PFIZER INC-2013238421

PATIENT
  Age: 57 Year
  Sex: Male
  Weight: 71.4 kg

DRUGS (3)
  1. DOXAZOSIN MESILATE [Suspect]
     Indication: HYPERTENSION
     Dosage: 8 MG, 1X/DAY (TWO 4 MG TABLETS)
     Dates: start: 201207
  2. AMLODIPINE BESILATE [Suspect]
     Indication: HYPERTENSION
     Dosage: 10 MG, UNK
  3. LISINOPRIL [Suspect]
     Indication: HYPERTENSION
     Dosage: 20 MG, UNK

REACTIONS (7)
  - Heart rate decreased [Recovering/Resolving]
  - Rash [Recovering/Resolving]
  - Vomiting [Recovering/Resolving]
  - Diarrhoea [Recovering/Resolving]
  - Paraesthesia [Recovering/Resolving]
  - Heart rate irregular [Recovering/Resolving]
  - Decreased appetite [Recovering/Resolving]
